FAERS Safety Report 7253018-8 (Version None)
Quarter: 2011Q1

REPORT INFORMATION
  Report Type: 
  Country: None (occurrence: None)
  Receive Date: 20110129
  Receipt Date: 20100312
  Transmission Date: 20110831
  Serious: No
  Sender: FDA-Public Use
  Company Number: US-ABBOTT-10P-163-0622253-00

PATIENT
  Sex: Female
  Weight: 79.904 kg

DRUGS (8)
  1. ZOLOFT [Concomitant]
     Indication: PRODUCT USED FOR UNKNOWN INDICATION
  2. OMEPRAZOLE [Concomitant]
     Indication: GASTRIC DISORDER
  3. HUMIRA [Suspect]
     Indication: PSORIASIS
     Route: 048
  4. HUMIRA [Suspect]
     Indication: PSORIATIC ARTHROPATHY
  5. CHANTIX [Suspect]
     Indication: SMOKING CESSATION THERAPY
     Dates: end: 20100117
  6. ELAVIL [Concomitant]
     Indication: PRODUCT USED FOR UNKNOWN INDICATION
     Route: 048
  7. DENALIN [Concomitant]
     Indication: LUNG DISORDER
  8. ZANAFLEX [Concomitant]
     Indication: FIBROMYALGIA

REACTIONS (9)
  - NAUSEA [None]
  - SWELLING FACE [None]
  - INJECTION SITE PAIN [None]
  - WRONG TECHNIQUE IN DRUG USAGE PROCESS [None]
  - PAIN IN EXTREMITY [None]
  - RASH MACULAR [None]
  - HEADACHE [None]
  - LOCAL SWELLING [None]
  - WEIGHT INCREASED [None]
